FAERS Safety Report 8406504-9 (Version None)
Quarter: 2012Q2

REPORT INFORMATION
  Report Type: 
  Country: None (occurrence: None)
  Receive Date: 20120529
  Receipt Date: 20050820
  Transmission Date: 20120825
  Serious: Yes (Other)
  Sender: FDA-Public Use
  Company Number: JP-2012-14717

PATIENT
  Age: 57 Year
  Sex: Male

DRUGS (1)
  1. TOLVAPTAN (TOLVAPTAN) TABLET [Suspect]
     Dosage: 15 MG MILLIGRAM(S), QD

REACTIONS (1)
  - SEPSIS [None]
